FAERS Safety Report 20830477 (Version 3)
Quarter: 2022Q2

REPORT INFORMATION
  Report Type: Report from Study
  Country: US (occurrence: US)
  Receive Date: 20220514
  Receipt Date: 20220624
  Transmission Date: 20220720
  Serious: Yes (Other)
  Sender: FDA-Public Use
  Company Number: US-BRISTOL-MYERS SQUIBB COMPANY-2022-019745

PATIENT
  Age: 49 Year
  Sex: Female
  Weight: 67.54 kg

DRUGS (2)
  1. REVLIMID [Suspect]
     Active Substance: LENALIDOMIDE
     Indication: Plasma cell myeloma
     Dosage: 28/BTL?DAILY FOR 3 WEEK AND STOP FOR 1 WEEK
     Route: 048
     Dates: start: 20210814
  2. REVLIMID [Suspect]
     Active Substance: LENALIDOMIDE
     Route: 048

REACTIONS (4)
  - Oral disorder [Unknown]
  - Pneumonia [Unknown]
  - Influenza [Unknown]
  - COVID-19 [Unknown]
